FAERS Safety Report 6260909-3 (Version None)
Quarter: 2009Q3

REPORT INFORMATION
  Report Type: 
  Country: None (occurrence: None)
  Receive Date: 20090709
  Receipt Date: 20080215
  Transmission Date: 20100115
  Serious: Yes (Hospitalization)
  Sender: FDA-Public Use
  Company Number: US-ASTRAZENECA-2007UW27385

PATIENT
  Age: 35 Year
  Sex: Male
  Weight: 108 kg

DRUGS (47)
  1. SEROQUEL [Suspect]
     Indication: SCHIZOPHRENIA, PARANOID TYPE
     Route: 048
     Dates: start: 20040101, end: 20070301
  2. SEROQUEL [Suspect]
     Indication: PSYCHOTIC DISORDER
     Route: 048
     Dates: start: 20040101, end: 20070301
  3. SEROQUEL [Suspect]
     Indication: AGITATION
     Route: 048
     Dates: start: 20040101, end: 20070301
  4. SEROQUEL [Suspect]
     Indication: ANXIETY
     Route: 048
     Dates: start: 20040101, end: 20070301
  5. SEROQUEL [Suspect]
     Indication: AGGRESSION
     Route: 048
     Dates: start: 20040101, end: 20070301
  6. SEROQUEL [Suspect]
     Route: 048
     Dates: start: 20040222
  7. SEROQUEL [Suspect]
     Route: 048
     Dates: start: 20040222
  8. SEROQUEL [Suspect]
     Route: 048
     Dates: start: 20040222
  9. SEROQUEL [Suspect]
     Route: 048
     Dates: start: 20040222
  10. SEROQUEL [Suspect]
     Route: 048
     Dates: start: 20040222
  11. SEROQUEL [Suspect]
     Route: 048
     Dates: start: 20041026
  12. SEROQUEL [Suspect]
     Route: 048
     Dates: start: 20041026
  13. SEROQUEL [Suspect]
     Route: 048
     Dates: start: 20041026
  14. SEROQUEL [Suspect]
     Route: 048
     Dates: start: 20041026
  15. SEROQUEL [Suspect]
     Route: 048
     Dates: start: 20041026
  16. SEROQUEL [Suspect]
     Route: 048
     Dates: start: 20050325
  17. SEROQUEL [Suspect]
     Route: 048
     Dates: start: 20050325
  18. SEROQUEL [Suspect]
     Route: 048
     Dates: start: 20050325
  19. SEROQUEL [Suspect]
     Route: 048
     Dates: start: 20050325
  20. SEROQUEL [Suspect]
     Route: 048
     Dates: start: 20050325
  21. SEROQUEL [Suspect]
     Route: 048
     Dates: start: 20051020
  22. SEROQUEL [Suspect]
     Route: 048
     Dates: start: 20051020
  23. SEROQUEL [Suspect]
     Route: 048
     Dates: start: 20051020
  24. SEROQUEL [Suspect]
     Route: 048
     Dates: start: 20051020
  25. SEROQUEL [Suspect]
     Route: 048
     Dates: start: 20051020
  26. SEROQUEL [Suspect]
     Dosage: 200 MG TWO TIMES A DAY AND 100 MG AT NIGHT
     Route: 048
     Dates: start: 20060809
  27. SEROQUEL [Suspect]
     Dosage: 200 MG TWO TIMES A DAY AND 100 MG AT NIGHT
     Route: 048
     Dates: start: 20060809
  28. SEROQUEL [Suspect]
     Dosage: 200 MG TWO TIMES A DAY AND 100 MG AT NIGHT
     Route: 048
     Dates: start: 20060809
  29. SEROQUEL [Suspect]
     Dosage: 200 MG TWO TIMES A DAY AND 100 MG AT NIGHT
     Route: 048
     Dates: start: 20060809
  30. SEROQUEL [Suspect]
     Dosage: 200 MG TWO TIMES A DAY AND 100 MG AT NIGHT
     Route: 048
     Dates: start: 20060809
  31. SEROQUEL [Suspect]
     Route: 048
     Dates: start: 20060901
  32. SEROQUEL [Suspect]
     Route: 048
     Dates: start: 20060901
  33. SEROQUEL [Suspect]
     Route: 048
     Dates: start: 20060901
  34. SEROQUEL [Suspect]
     Route: 048
     Dates: start: 20060901
  35. SEROQUEL [Suspect]
     Route: 048
     Dates: start: 20060901
  36. SEROQUEL [Suspect]
     Route: 048
     Dates: start: 20060927
  37. SEROQUEL [Suspect]
     Route: 048
     Dates: start: 20060927
  38. SEROQUEL [Suspect]
     Route: 048
     Dates: start: 20060927
  39. SEROQUEL [Suspect]
     Route: 048
     Dates: start: 20060927
  40. SEROQUEL [Suspect]
     Route: 048
     Dates: start: 20060927
  41. ABILIFY [Concomitant]
  42. GEODON [Concomitant]
  43. RISPERDAL [Concomitant]
     Indication: PSYCHOTIC DISORDER
     Dosage: 1 MG - 12 MG
     Dates: start: 19990610
  44. THORAZINE [Concomitant]
  45. ZYPREXA [Concomitant]
     Dates: start: 20040222
  46. SINEMET [Concomitant]
     Dosage: 25 / 250 TWO TABLET TWO TIMES A DAY
     Dates: start: 20051020
  47. LEXAPRO [Concomitant]
     Dosage: 10 MG - 20 MG
     Dates: start: 20040222

REACTIONS (6)
  - BLOOD CHOLESTEROL INCREASED [None]
  - DIABETES MELLITUS [None]
  - HYPERCHOLESTEROLAEMIA [None]
  - PSYCHOTIC DISORDER [None]
  - SCHIZOPHRENIA [None]
  - TYPE 2 DIABETES MELLITUS [None]
